FAERS Safety Report 8558177-2 (Version None)
Quarter: 2012Q3

REPORT INFORMATION
  Report Type: 
  Country: None (occurrence: None)
  Receive Date: 20120801
  Receipt Date: 20120723
  Transmission Date: 20120928
  Serious: Yes (Other)
  Sender: FDA-Public Use
  Company Number: US-ASTRAZENECA-2012SE07593

PATIENT
  Age: 56 Year
  Sex: Male

DRUGS (6)
  1. SEROQUEL [Suspect]
     Route: 048
     Dates: start: 20120601
  2. SEROQUEL [Suspect]
     Indication: BIPOLAR DISORDER
     Route: 048
     Dates: start: 20110401
  3. LAMICTAL [Concomitant]
     Indication: CONVULSION
  4. SEROQUEL [Suspect]
     Route: 048
     Dates: start: 20110401
  5. SEROQUEL [Suspect]
     Dosage: GENERIC
     Route: 048
  6. TOPROL-XL [Suspect]
     Route: 048

REACTIONS (5)
  - DRUG EFFECT DECREASED [None]
  - BIPOLAR DISORDER [None]
  - SCHIZOPHRENIA [None]
  - CONVULSION [None]
  - HEPATITIS B VIRUS TEST POSITIVE [None]
